FAERS Safety Report 24269840 (Version 1)
Quarter: 2024Q3

REPORT INFORMATION
  Report Type: Spontaneous
  Country: US (occurrence: US)
  Receive Date: 20240830
  Receipt Date: 20240830
  Transmission Date: 20241017
  Serious: Yes (Other)
  Sender: BAYER
  Company Number: US-BAYER-2024A121409

PATIENT
  Age: 66 Year
  Sex: Female

DRUGS (1)
  1. KERENDIA [Suspect]
     Active Substance: FINERENONE
     Dosage: 10 MG
     Dates: start: 202406, end: 20240819

REACTIONS (2)
  - Acute kidney injury [Recovered/Resolved]
  - Glomerular filtration rate decreased [None]

NARRATIVE: CASE EVENT DATE: 20240614
